FAERS Safety Report 5643377-1 (Version None)
Quarter: 2008Q1

REPORT INFORMATION
  Report Type: 
  Country: None (occurrence: None)
  Receive Date: 20080131
  Receipt Date: 20071008
  Transmission Date: 20080703
  Serious: Yes (Hospitalization)
  Sender: FDA-Public Use
  Company Number: 163-21880-07100438

PATIENT
  Age: 86 Year
  Sex: Female

DRUGS (13)
  1. REVLIMID [Suspect]
     Indication: MYELODYSPLASTIC SYNDROME
     Dosage: 10 MG, AT BEDTIME X 21 DAYS Q 4 WEEKS ; 5 MG, 1 IN 1 D, ORAL
     Route: 048
     Dates: start: 20070824, end: 20070101
  2. REVLIMID [Suspect]
     Indication: MYELODYSPLASTIC SYNDROME
     Dosage: 10 MG, AT BEDTIME X 21 DAYS Q 4 WEEKS ; 5 MG, 1 IN 1 D, ORAL
     Route: 048
     Dates: start: 20071009
  3. FUROSEMIDE [Concomitant]
  4. KLOR-CON [Concomitant]
  5. SIMVASTATIN [Concomitant]
  6. FOLIC ACID [Concomitant]
  7. FERROUS SULFATE TAB [Concomitant]
  8. CAPTOPRIL [Concomitant]
  9. OXYCONTIN [Concomitant]
  10. VITAMIN B6 [Concomitant]
  11. CALCIUM (CALCIUM) [Concomitant]
  12. ACTONEL [Concomitant]
  13. MULTIVITAMIN [Concomitant]

REACTIONS (1)
  - PNEUMONIA [None]
